FAERS Safety Report 13921609 (Version 1)
Quarter: 2017Q3

REPORT INFORMATION
  Report Type: Spontaneous
  Country: US (occurrence: None)
  Receive Date: 20170830
  Receipt Date: 20170830
  Transmission Date: 20171127
  Serious: No
  Sender: FDA-Public Use
  Company Number: None

PATIENT
  Age: 59 Year
  Sex: Female
  Weight: 86.18 kg

DRUGS (14)
  1. VITAMIN D [Concomitant]
     Active Substance: CHOLECALCIFEROL
  2. SERTALIN [Concomitant]
  3. ATORVASTATIN [Concomitant]
     Active Substance: ATORVASTATIN
  4. METOPROLOL. [Concomitant]
     Active Substance: METOPROLOL
  5. ASPIRIN. [Concomitant]
     Active Substance: ASPIRIN
  6. QVAR [Concomitant]
     Active Substance: BECLOMETHASONE DIPROPIONATE
  7. MULTIVITAMIN [Concomitant]
     Active Substance: VITAMINS
  8. VALACYCLOVIR HCL 1 GRAM TABLET [Suspect]
     Active Substance: VALACYCLOVIR HYDROCHLORIDE
     Indication: HERPES ZOSTER
     Route: 048
     Dates: start: 20170723, end: 20170808
  9. PLAVIX [Concomitant]
     Active Substance: CLOPIDOGREL BISULFATE
  10. LISINOPRIL. [Concomitant]
     Active Substance: LISINOPRIL
  11. ALBUTEROL. [Concomitant]
     Active Substance: ALBUTEROL
  12. TOUJEO [Concomitant]
     Active Substance: INSULIN GLARGINE
  13. NITRO [Concomitant]
     Active Substance: NITROGLYCERIN
  14. LEVOTHYROXIN [Concomitant]
     Active Substance: LEVOTHYROXINE

REACTIONS (5)
  - Hypotension [None]
  - Syncope [None]
  - Hypoglycaemia [None]
  - Hyperhidrosis [None]
  - Palpitations [None]

NARRATIVE: CASE EVENT DATE: 20170808
